FAERS Safety Report 18405921 (Version 1)
Quarter: 2020Q4

REPORT INFORMATION
  Report Type: Spontaneous
  Country: GB (occurrence: GB)
  Receive Date: 20201020
  Receipt Date: 20201020
  Transmission Date: 20210114
  Serious: Yes (Other)
  Sender: FDA-Public Use
  Company Number: GB-MYLANLABS-2020M1087858

PATIENT
  Age: 65 Year
  Sex: Female
  Weight: 98 kg

DRUGS (15)
  1. BUPRENORPHINE. [Concomitant]
     Active Substance: BUPRENORPHINE
     Dosage: APPLY
     Dates: start: 20200420, end: 20200915
  2. PREGABALIN. [Concomitant]
     Active Substance: PREGABALIN
     Dosage: 2 DOSAGE FORM, QD
     Dates: start: 20200129
  3. ADCAL                              /07357001/ [Concomitant]
     Active Substance: CALCIUM CARBONATE
     Dosage: 2 DOSAGE FORM, QD
     Dates: start: 20200129
  4. OMEPRAZOLE. [Concomitant]
     Active Substance: OMEPRAZOLE
     Dosage: 1 DOSAGE FORM, QD
     Dates: start: 20200129
  5. PARACETAMOL [Concomitant]
     Active Substance: ACETAMINOPHEN
     Dosage: TAKE 1 OR 2 TABLETS, 4 TIMES/DAY
     Dates: start: 20200129
  6. NITROFURANTOIN. [Concomitant]
     Active Substance: NITROFURANTOIN
     Dosage: 2 DOSAGE FORM, QD
     Dates: start: 20200827, end: 20200830
  7. TRAZODONE [Concomitant]
     Active Substance: TRAZODONE HYDROCHLORIDE
     Dosage: TAKE 1 MORNING AND 2 EACH NIGHT
     Dates: start: 20200311
  8. DOXYCYCLINE. [Concomitant]
     Active Substance: DOXYCYCLINE
     Indication: BRONCHITIS
     Dosage: ACUTE COUGH/BRONCHITIS: TAKE TWO CAPSULES ON TH.
     Dates: start: 20200916
  9. OXYBUTYNIN. [Concomitant]
     Active Substance: OXYBUTYNIN CHLORIDE
     Dosage: 1 DOSAGE FORM, QD
     Dates: start: 20200211
  10. PREDNISOLONE. [Concomitant]
     Active Substance: PREDNISOLONE
     Dosage: FOR 5 DAYS
     Dates: start: 20200916
  11. IBUPROFEN. [Suspect]
     Active Substance: IBUPROFEN
     Indication: PRODUCT USED FOR UNKNOWN INDICATION
     Dosage: 400 MILLIGRAM
     Dates: start: 20200916
  12. PROCHLORPERAZINE. [Concomitant]
     Active Substance: PROCHLORPERAZINE
     Dosage: AS REQUIRED
     Dates: start: 20200129
  13. ORAMORPH [Concomitant]
     Active Substance: MORPHINE SULFATE
     Dosage: AS REQUIRED
     Dates: start: 20200727, end: 20200821
  14. BUPEAZE [Concomitant]
     Dosage: APPLY PATCH TO CLEAN DRY, NON-HAIRY SKIN (U.
     Dates: start: 20200915
  15. SALBUTAMOL [Concomitant]
     Active Substance: ALBUTEROL
     Dosage: INHALE
     Route: 055
     Dates: start: 20200623, end: 20200721

REACTIONS (1)
  - Asthma [Recovered/Resolved]

NARRATIVE: CASE EVENT DATE: 20200916
